FAERS Safety Report 16044123 (Version 1)
Quarter: 2019Q1

REPORT INFORMATION
  Report Type: Spontaneous
  Country: JP (occurrence: JP)
  Receive Date: 20190306
  Receipt Date: 20190306
  Transmission Date: 20190418
  Serious: Yes (Death)
  Sender: FDA-Public Use
  Company Number: JP-PFIZER INC-2019096925

PATIENT
  Age: 62 Year
  Sex: Female

DRUGS (5)
  1. VORICONAZOLE. [Suspect]
     Active Substance: VORICONAZOLE
     Dosage: UNK
  2. ITRACONAZOLE. [Concomitant]
     Active Substance: ITRACONAZOLE
     Dosage: UNK
  3. CLARITHROMYCIN. [Suspect]
     Active Substance: CLARITHROMYCIN
     Dosage: UNK
  4. ETHAMBUTOL [Suspect]
     Active Substance: ETHAMBUTOL HYDROCHLORIDE
     Dosage: UNK
  5. SITAFLOXACIN [Suspect]
     Active Substance: SITAFLOXACIN
     Dosage: UNK

REACTIONS (2)
  - Disease progression [Fatal]
  - Bronchopulmonary aspergillosis [Fatal]
